FAERS Safety Report 4595406-4 (Version None)
Quarter: 2005Q1

REPORT INFORMATION
  Report Type: 
  Country: None (occurrence: None)
  Receive Date: 20050224
  Receipt Date: 20050208
  Transmission Date: 20050727
  Serious: Yes (Other)
  Sender: FDA-Public Use
  Company Number: USA050187444

PATIENT
  Age: 17 Year
  Sex: Male
  Weight: 82 kg

DRUGS (1)
  1. SYMBYAX [Suspect]
     Indication: BIPOLAR I DISORDER
     Dates: start: 20041203, end: 20041224

REACTIONS (13)
  - BLADDER DISORDER [None]
  - CONVULSION [None]
  - CYANOSIS [None]
  - FALL [None]
  - FOAMING AT MOUTH [None]
  - GASTROINTESTINAL DISORDER [None]
  - INFECTION [None]
  - LOSS OF CONSCIOUSNESS [None]
  - MEMORY IMPAIRMENT [None]
  - MUSCLE TWITCHING [None]
  - SOMNOLENCE [None]
  - TONIC CLONIC MOVEMENTS [None]
  - TREMOR [None]
